FAERS Safety Report 24953453 (Version 1)
Quarter: 2025Q1

REPORT INFORMATION
  Report Type: Spontaneous
  Country: US (occurrence: US)
  Receive Date: 20250211
  Receipt Date: 20250211
  Transmission Date: 20250409
  Serious: No
  Sender: ABBVIE
  Company Number: US-ABBVIE-6123902

PATIENT
  Age: 85 Year
  Sex: Female

DRUGS (1)
  1. ARMOUR THYROID [Suspect]
     Active Substance: THYROID, PORCINE
     Indication: Product used for unknown indication
     Route: 048
     Dates: start: 202411

REACTIONS (3)
  - Urticaria [Unknown]
  - Papule [Unknown]
  - Pruritus [Unknown]

NARRATIVE: CASE EVENT DATE: 20250201
